FAERS Safety Report 5366778-8 (Version None)
Quarter: 2007Q2

REPORT INFORMATION
  Report Type: 
  Country: None (occurrence: None)
  Receive Date: 20070622
  Receipt Date: 20060628
  Transmission Date: 20071010
  Serious: No
  Sender: FDA-Public Use
  Company Number: US-ASTRAZENECA-2006UW13662

PATIENT
  Age: 56 Year
  Sex: Female
  Weight: 81.6 kg

DRUGS (3)
  1. RHINOCORT [Suspect]
     Indication: SINUS DISORDER
     Route: 045
  2. CLARITIN [Concomitant]
  3. AMOXICILLIN [Concomitant]

REACTIONS (1)
  - SOMNOLENCE [None]
